FAERS Safety Report 9496231 (Version 5)
Quarter: 2014Q2

REPORT INFORMATION
  Report Type: Spontaneous
  Country: IE (occurrence: None)
  Receive Date: 20130829
  Receipt Date: 20140522
  Transmission Date: 20141212
  Serious: Yes (Hospitalization)
  Sender: FDA-Public Use
  Company Number: FK201303565

PATIENT
  Age: 34 Year
  Sex: Female

DRUGS (1)
  1. INTRALIPID [Suspect]
     Indication: PRODUCT USED FOR UNKNOWN INDICATION
     Dosage: 1 IN 1 D
     Route: 041
     Dates: start: 20130816, end: 20130816

REACTIONS (10)
  - Malaise [None]
  - Nausea [None]
  - Pallor [None]
  - Asthenia [None]
  - Chills [None]
  - Malaise [None]
  - Blood pressure decreased [None]
  - Infusion related reaction [None]
  - Maternal exposure during pregnancy [None]
  - Product quality issue [None]
